FAERS Safety Report 14118633 (Version 1)
Quarter: 2017Q4

REPORT INFORMATION
  Report Type: Spontaneous
  Country: DE (occurrence: DE)
  Receive Date: 20171024
  Receipt Date: 20171024
  Transmission Date: 20180321
  Serious: Yes (Other)
  Sender: FDA-Public Use
  Company Number: DE-ALKEM LABORATORIES LIMITED-DE-ALKEM-2017-00639

PATIENT
  Age: 58 Year
  Sex: Male
  Weight: 85 kg

DRUGS (4)
  1. CEFUROXIME AXETIL. [Suspect]
     Active Substance: CEFUROXIME AXETIL
     Indication: ABSCESS
     Dosage: 1000 MG EVERY DAY
     Route: 048
     Dates: start: 201706, end: 20170904
  2. RITONAVIR. [Concomitant]
     Active Substance: RITONAVIR
     Indication: HIV INFECTION
     Dosage: 100 MG EVERY 2 DAYS
     Route: 048
     Dates: start: 200602
  3. LOPINAVIR [Concomitant]
     Active Substance: LOPINAVIR
     Indication: HIV INFECTION
     Dosage: 400 MG EVERY 2 DAYS
     Route: 048
     Dates: start: 200602
  4. RALTEGRAVIR. [Concomitant]
     Active Substance: RALTEGRAVIR
     Indication: HIV INFECTION
     Dosage: 400 MG, BID (800 MG EVERY DAY)
     Route: 048
     Dates: start: 200602

REACTIONS (3)
  - Drug effect decreased [Unknown]
  - Blood HIV RNA increased [Unknown]
  - Drug interaction [Unknown]

NARRATIVE: CASE EVENT DATE: 20170809
